FAERS Safety Report 17237953 (Version 1)
Quarter: 2020Q1

REPORT INFORMATION
  Report Type: Spontaneous
  Country: US (occurrence: US)
  Receive Date: 20200106
  Receipt Date: 20200106
  Transmission Date: 20200409
  Serious: No
  Sender: FDA-Public Use
  Company Number: US-PACIRA-201900002

PATIENT

DRUGS (1)
  1. EXPAREL [Suspect]
     Active Substance: BUPIVACAINE
     Indication: KNEE ARTHROPLASTY
     Dosage: 80 ML, (FOUR 20 ML VIALS) SINGLE, FREQUENCY : SINGLE
     Dates: start: 20190225, end: 20190225

REACTIONS (2)
  - Extra dose administered [Unknown]
  - No adverse event [Unknown]

NARRATIVE: CASE EVENT DATE: 20190225
